FAERS Safety Report 21278923 (Version 9)
Quarter: 2022Q4

REPORT INFORMATION
  Report Type: Spontaneous
  Country: CA (occurrence: CA)
  Receive Date: 20220901
  Receipt Date: 20221230
  Transmission Date: 20230113
  Serious: Yes (Other)
  Sender: FDA-Public Use
  Company Number: CA-CELLTRION INC.-2022CA011113

PATIENT

DRUGS (17)
  1. INFLECTRA [Suspect]
     Active Substance: INFLIXIMAB-DYYB
     Indication: Psoriatic arthropathy
     Dosage: 5MG/KG, ROUND TO HIGHEST VIAL; Q 0, 2, 6 WEEK, THEN EVERY 6 WEEKS
     Route: 042
  2. INFLECTRA [Suspect]
     Active Substance: INFLIXIMAB-DYYB
     Dosage: 5 MG/KG, ROUND TO HIGHEST VIAL; Q 0, 2, 6 WEEK, THEN EVERY 6 WEEKS
     Route: 042
     Dates: start: 20220708
  3. INFLECTRA [Suspect]
     Active Substance: INFLIXIMAB-DYYB
     Dosage: 5 MG/KG, ROUND TO HIGHEST VIAL; Q 0, 2, 6 WEEK, THEN EVERY 6 WEEKS
     Route: 042
     Dates: start: 20220708
  4. INFLECTRA [Suspect]
     Active Substance: INFLIXIMAB-DYYB
     Dosage: 5 MG/KG, EVERY 6 WEEKS, ROUND TO HIGHEST VIAL; Q 0, 2, 6 WEEK, THEN EVERY 6 WEEKS
     Route: 042
     Dates: start: 20220708, end: 20220720
  5. INFLECTRA [Suspect]
     Active Substance: INFLIXIMAB-DYYB
     Dosage: 5 MG/KG, ROUND TO HIGHEST VIAL; Q 0, 2, 6 WEEK, THEN EVERY 6 WEEKS
     Route: 042
     Dates: start: 20220720
  6. INFLECTRA [Suspect]
     Active Substance: INFLIXIMAB-DYYB
     Dosage: 7 MG/KG 600 MG - WEEK 6 AND THEN EVERY 6 WEEKS FOR MAINTENANCE
     Route: 042
     Dates: start: 20220817
  7. INFLECTRA [Suspect]
     Active Substance: INFLIXIMAB-DYYB
     Dosage: 7 MG/KG 600 MG-WEEK 6 AND THEN EVERY 6 WEEKS FOR MAINTENANCE
     Route: 042
     Dates: start: 20220817, end: 20221107
  8. INFLECTRA [Suspect]
     Active Substance: INFLIXIMAB-DYYB
     Dosage: 7 MG/KG 600 MG - WEEK 6 AND THEN EVERY 6 WEEKS FOR MAINTENANCE
     Route: 042
     Dates: start: 20220929
  9. INFLECTRA [Suspect]
     Active Substance: INFLIXIMAB-DYYB
     Dosage: 7 MG/KG 600 MG - WEEK 6 AND THEN EVERY 6 WEEKS FOR MAINTENANCE
     Route: 042
     Dates: start: 20220929
  10. INFLECTRA [Suspect]
     Active Substance: INFLIXIMAB-DYYB
     Dosage: 7 MG/KG 600 MG - WEEK 6 AND THEN EVERY 6 WEEKS FOR MAINTENANCE
     Route: 042
     Dates: start: 20220929
  11. INFLECTRA [Suspect]
     Active Substance: INFLIXIMAB-DYYB
     Dosage: 10 MG/KG EVERY 6 WEEK (NOT YET STARTED)
     Route: 042
  12. INFLECTRA [Suspect]
     Active Substance: INFLIXIMAB-DYYB
     Dosage: 7 MG/KG 600 MG - WEEK 6 AND THEN EVERY 6 WEEKS FOR MAINTENANCE
     Route: 042
     Dates: start: 20221026
  13. INFLECTRA [Suspect]
     Active Substance: INFLIXIMAB-DYYB
     Dosage: 7 MG/KG 600 MG - WEEK 6 AND THEN EVERY 6 WEEKS FOR MAINTENANCE
     Route: 042
     Dates: start: 20221026
  14. INFLECTRA [Suspect]
     Active Substance: INFLIXIMAB-DYYB
     Dosage: 7 MG/KG 600 MG-WEEK 6 AND THEN EVERY 6 WEEKS FOR MAINTENANCE
     Route: 042
     Dates: start: 20221220
  15. FLUCONAZOLE [Concomitant]
     Active Substance: FLUCONAZOLE
     Dosage: 1 DF
  16. METHOTREXATE SODIUM [Concomitant]
     Active Substance: METHOTREXATE SODIUM
     Indication: Psoriatic arthropathy
     Dosage: 20 MG, EVERY WEEK
     Route: 058
     Dates: start: 202108, end: 2022
  17. METHOTREXATE SODIUM [Concomitant]
     Active Substance: METHOTREXATE SODIUM
     Dosage: 10 MG, WEEKLY
     Route: 058
     Dates: start: 2022

REACTIONS (16)
  - Rosacea [Recovered/Resolved]
  - Dermatitis [Recovered/Resolved]
  - Skin disorder [Unknown]
  - Off label use [Unknown]
  - Intentional product use issue [Unknown]
  - Off label use [Unknown]
  - Off label use [Unknown]
  - Synovitis [Unknown]
  - Aphonia [Not Recovered/Not Resolved]
  - Oropharyngeal pain [Not Recovered/Not Resolved]
  - Sensitive skin [Not Recovered/Not Resolved]
  - Pain in extremity [Unknown]
  - Skin swelling [Unknown]
  - Contusion [Unknown]
  - Cough [Not Recovered/Not Resolved]
  - Vaginal infection [Unknown]

NARRATIVE: CASE EVENT DATE: 20220101
